FAERS Safety Report 11254718 (Version 2)
Quarter: 2015Q3

REPORT INFORMATION
  Report Type: Spontaneous
  Country: PH (occurrence: PH)
  Receive Date: 20150709
  Receipt Date: 20150819
  Transmission Date: 20151125
  Serious: No
  Sender: FDA-Public Use
  Company Number: PH-PFIZER INC-2015226314

PATIENT
  Sex: Male

DRUGS (4)
  1. DILANTIN [Suspect]
     Active Substance: PHENYTOIN
     Indication: SEIZURE
     Dosage: 100 MG, 3X/DAY
  2. DILANTIN [Suspect]
     Active Substance: PHENYTOIN
     Dosage: 3 DF, DAILY
  3. DILANTIN [Suspect]
     Active Substance: PHENYTOIN
     Dosage: 500 MG, 3X/DAY
     Dates: start: 2005
  4. DILANTIN [Suspect]
     Active Substance: PHENYTOIN
     Dosage: 1 DF, DAILY

REACTIONS (1)
  - Drug ineffective [Unknown]
